FAERS Safety Report 18122010 (Version 1)
Quarter: 2020Q3

REPORT INFORMATION
  Report Type: Other
  Country: MX (occurrence: MX)
  Receive Date: 20200806
  Receipt Date: 20200806
  Transmission Date: 20201103
  Serious: Yes (Other)
  Sender: FDA-Public Use
  Company Number: MX-ROCHE-2653319

PATIENT
  Age: 30 Year
  Sex: Female

DRUGS (10)
  1. PREDNISONE. [Concomitant]
     Active Substance: PREDNISONE
     Indication: NON-HODGKIN^S LYMPHOMA
     Route: 048
     Dates: start: 2019
  2. DOXORUBICIN [Concomitant]
     Active Substance: DOXORUBICIN
     Indication: NON-HODGKIN^S LYMPHOMA
     Dosage: DOSE NOT REPORTED
     Route: 042
     Dates: start: 2019
  3. CYCLOPHOSPHAMIDE. [Concomitant]
     Active Substance: CYCLOPHOSPHAMIDE
     Indication: NON-HODGKIN^S LYMPHOMA
     Dosage: DOSE AND FREQUENCY NOT REPORTED
  4. RIVOTRIL [Concomitant]
     Active Substance: CLONAZEPAM
     Dosage: DOSE AND FREQUENCY NOT REPORTED
     Route: 048
  5. SERTRALINE [Concomitant]
     Active Substance: SERTRALINE HYDROCHLORIDE
     Indication: ANXIETY
  6. RITUXIMAB. [Suspect]
     Active Substance: RITUXIMAB
     Indication: DIFFUSE LARGE B-CELL LYMPHOMA
     Dosage: DOSE NOT REPORTED
     Route: 042
     Dates: start: 2019
  7. VINCRISTINE [Concomitant]
     Active Substance: VINCRISTINE
     Indication: NON-HODGKIN^S LYMPHOMA
     Dosage: DOSE NOT REPORTED
     Route: 042
     Dates: start: 2019
  8. RITUXIMAB. [Suspect]
     Active Substance: RITUXIMAB
     Indication: B-CELL LYMPHOMA
     Dosage: DOSE NOT REPORTED
     Route: 042
     Dates: start: 202006
  9. FILGRASTIM [Concomitant]
     Active Substance: FILGRASTIM
  10. PREGABALIN. [Concomitant]
     Active Substance: PREGABALIN
     Route: 048

REACTIONS (25)
  - Pruritus [Unknown]
  - Alopecia [Unknown]
  - Herpes virus infection [Unknown]
  - Emotional distress [Unknown]
  - Fatigue [Unknown]
  - White blood cell count decreased [Unknown]
  - Internal haemorrhage [Unknown]
  - Fibrosis [Unknown]
  - Depression [Unknown]
  - Ill-defined disorder [Unknown]
  - Nausea [Unknown]
  - Vomiting [Unknown]
  - Laboratory test abnormal [Unknown]
  - Inflammation [Unknown]
  - Mood altered [Unknown]
  - Drug ineffective [Unknown]
  - Weight decreased [Unknown]
  - Contusion [Unknown]
  - Anxiety [Unknown]
  - Asthenia [Unknown]
  - Myalgia [Unknown]
  - Thermal burn [Unknown]
  - Tremor [Unknown]
  - Insomnia [Unknown]
  - Dark circles under eyes [Unknown]
